FAERS Safety Report 8075699-1 (Version None)
Quarter: 2012Q1

REPORT INFORMATION
  Report Type: 
  Country: None (occurrence: None)
  Receive Date: 20120127
  Receipt Date: 20120123
  Transmission Date: 20120608
  Serious: Yes (Death)
  Sender: FDA-Public Use
  Company Number: DE-ASTELLAS-2012EU000437

PATIENT
  Sex: Female

DRUGS (15)
  1. VANCOMYCIN HCL [Concomitant]
     Dosage: UNK
     Dates: start: 20111014
  2. PANTOPRAZOLE [Concomitant]
     Dosage: UNK
     Route: 065
     Dates: start: 20111007
  3. MIRTAZAPINE [Concomitant]
     Dosage: UNK
     Route: 065
     Dates: start: 20111014
  4. KEPPRA [Concomitant]
     Dosage: UNK
     Route: 065
     Dates: start: 20111014
  5. TAZOBACTAM [Concomitant]
     Dosage: UNK
     Route: 065
     Dates: start: 20111022
  6. ALENDRONATE SODIUM [Concomitant]
     Dosage: UNK
     Route: 065
     Dates: start: 20111014
  7. MICAFUNGIN INJECTION [Suspect]
     Dosage: 100 MG, UNKNOWN/D
     Route: 065
     Dates: start: 20111022, end: 20111026
  8. RAMIPRIL [Concomitant]
     Dosage: UNK
     Route: 065
     Dates: start: 20111014
  9. LEVOTHYROXINE SODIUM [Concomitant]
     Dosage: UNK
     Route: 065
     Dates: start: 20111007
  10. HYDROCHLOROTHIAZIDE [Concomitant]
     Dosage: UNK
     Route: 065
     Dates: start: 20111017
  11. SIMVASTATIN [Concomitant]
     Dosage: UNK
     Route: 065
     Dates: start: 20111007
  12. ASPIRIN [Concomitant]
     Dosage: UNK
     Route: 065
     Dates: start: 20111007
  13. DIAMOX SRC [Concomitant]
     Dosage: UNK
     Route: 065
     Dates: start: 20111019
  14. PREGABALIN [Concomitant]
     Dosage: UNK
     Route: 065
     Dates: start: 20111007
  15. SPIRONOLACTONE [Concomitant]
     Dosage: UNK
     Route: 065
     Dates: start: 20111007

REACTIONS (1)
  - PULSELESS ELECTRICAL ACTIVITY [None]
